APPROVED DRUG PRODUCT: IMITREX
Active Ingredient: SUMATRIPTAN
Strength: 10MG/SPRAY
Dosage Form/Route: SPRAY;NASAL
Application: N020626 | Product #002
Applicant: GLAXOSMITHKLINE
Approved: Aug 26, 1997 | RLD: No | RS: No | Type: DISCN